FAERS Safety Report 5785929-4 (Version None)
Quarter: 2008Q2

REPORT INFORMATION
  Report Type: 
  Country: None (occurrence: None)
  Receive Date: 20080620
  Receipt Date: 20080620
  Transmission Date: 20081010
  Serious: Yes (Other)
  Sender: FDA-Public Use
  Company Number: None

PATIENT
  Sex: Male
  Weight: 86.1834 kg

DRUGS (1)
  1. SINGULAIR [Suspect]
     Indication: HYPERSENSITIVITY
     Dosage: 1 TABLET DAILY PO
     Route: 048
     Dates: start: 20050601, end: 20080601

REACTIONS (4)
  - DEPRESSION [None]
  - INSOMNIA [None]
  - LETHARGY [None]
  - WEIGHT INCREASED [None]
